FAERS Safety Report 15268835 (Version 2)
Quarter: 2018Q3

REPORT INFORMATION
  Report Type: Spontaneous
  Country: JP (occurrence: JP)
  Receive Date: 20180813
  Receipt Date: 20180911
  Transmission Date: 20181010
  Serious: Yes (Other)
  Sender: FDA-Public Use
  Company Number: JP-009507513-1808JPN000741J

PATIENT
  Age: 75 Year
  Sex: Female
  Weight: 54 kg

DRUGS (5)
  1. PROPOFOL. [Concomitant]
     Active Substance: PROPOFOL
     Dosage: 100 MG, UNK
     Route: 065
  2. ESLAX [Concomitant]
     Active Substance: ROCURONIUM BROMIDE
     Indication: NEUROMUSCULAR BLOCKING THERAPY
     Dosage: 30 MG, UNK
     Route: 041
  3. BRIDION [Suspect]
     Active Substance: SUGAMMADEX
     Indication: NEUROMUSCULAR BLOCKADE REVERSAL
     Dosage: 200 MG, UNK
     Route: 041
  4. PENTAZOCINE [Concomitant]
     Active Substance: PENTAZOCINE
     Dosage: 30 MG, UNK
     Route: 065
  5. SEVOFLURANE. [Concomitant]
     Active Substance: SEVOFLURANE
     Dosage: UNK
     Route: 065

REACTIONS (10)
  - Electrocardiogram abnormal [Recovering/Resolving]
  - Ventricular extrasystoles [Unknown]
  - Arteriospasm coronary [Recovering/Resolving]
  - Ventricular fibrillation [Recovering/Resolving]
  - Hypotension [Recovering/Resolving]
  - Atrioventricular block [Unknown]
  - Ventricular hypokinesia [Unknown]
  - Bradycardia [Recovering/Resolving]
  - Circulatory collapse [Recovering/Resolving]
  - Depressed level of consciousness [Unknown]
